FAERS Safety Report 22274594 (Version 1)
Quarter: 2023Q2

REPORT INFORMATION
  Report Type: Spontaneous
  Country: JP (occurrence: JP)
  Receive Date: 20230502
  Receipt Date: 20230502
  Transmission Date: 20230721
  Serious: Yes (Other)
  Sender: FDA-Public Use
  Company Number: JP-SA-2023SA129394

PATIENT
  Age: 18 Month
  Sex: Female

DRUGS (6)
  1. FLUDARABINE PHOSPHATE [Suspect]
     Active Substance: FLUDARABINE PHOSPHATE
     Indication: Bone marrow conditioning regimen
     Dosage: 25 MG/M2
  2. ANTI-THYMOCYTE GLOBULIN (RABBIT) NOS [Suspect]
     Active Substance: LAPINE T-LYMPHOCYTE IMMUNE GLOBULIN
     Indication: Bone marrow conditioning regimen
     Dosage: 2.5 MG/KG
  3. CYCLOPHOSPHAMIDE [Suspect]
     Active Substance: CYCLOPHOSPHAMIDE
     Indication: Bone marrow conditioning regimen
     Dosage: 50 MG/KG
  4. TACROLIMUS [Concomitant]
     Active Substance: TACROLIMUS
     Indication: Prophylaxis
     Dosage: UNK
  5. METHOTREXATE [Concomitant]
     Active Substance: METHOTREXATE
     Indication: Prophylaxis
     Dosage: UNK
  6. PREDNISOLONE [Concomitant]
     Active Substance: PREDNISOLONE
     Indication: Acute graft versus host disease
     Dosage: UNK

REACTIONS (6)
  - Staphylococcal infection [Unknown]
  - Sepsis [Unknown]
  - Seizure [Unknown]
  - Off label use [Unknown]
  - Product administered to patient of inappropriate age [Unknown]
  - Toxicity to various agents [Unknown]
